FAERS Safety Report 9204761 (Version 3)
Quarter: 2013Q3

REPORT INFORMATION
  Report Type: Spontaneous
  Country: FR (occurrence: FR)
  Receive Date: 20130402
  Receipt Date: 20130711
  Transmission Date: 20140515
  Serious: Yes (Life-Threatening, Hospitalization)
  Sender: FDA-Public Use
  Company Number: FR-PFIZER INC-2013012124

PATIENT
  Age: 62 Year
  Sex: Male
  Weight: 71 kg

DRUGS (1)
  1. INLYTA [Suspect]
     Indication: RENAL CANCER METASTATIC
     Dosage: 5 MG, 2X/DAY
     Route: 048
     Dates: start: 20121214, end: 20121217

REACTIONS (7)
  - Drug-induced liver injury [Recovered/Resolved]
  - Ascites [Recovered/Resolved]
  - Oedema [Recovered/Resolved]
  - Pleural effusion [Unknown]
  - Dysphonia [Unknown]
  - Disease progression [Unknown]
  - Renal cancer metastatic [Unknown]
